FAERS Safety Report 5709246-3 (Version None)
Quarter: 2008Q2

REPORT INFORMATION
  Report Type: 
  Country: None (occurrence: None)
  Receive Date: 20080418
  Receipt Date: 20080410
  Transmission Date: 20081010
  Serious: Yes (Other)
  Sender: FDA-Public Use
  Company Number: US-ASTRAZENECA-2008UW07329

PATIENT
  Age: 59 Year
  Sex: Female
  Weight: 69.4 kg

DRUGS (3)
  1. CRESTOR [Suspect]
     Indication: BLOOD CHOLESTEROL INCREASED
     Route: 048
     Dates: start: 20071101, end: 20080305
  2. BLOOD PRESSURE MEDICATION [Concomitant]
  3. ANTI-DEPRESSANT [Concomitant]

REACTIONS (1)
  - MUSCLE ATROPHY [None]
